FAERS Safety Report 9277987 (Version 1)
Quarter: 2013Q2

REPORT INFORMATION
  Report Type: Spontaneous
  Country: US (occurrence: US)
  Receive Date: 20130508
  Receipt Date: 20130508
  Transmission Date: 20140414
  Serious: Yes (Other)
  Sender: FDA-Public Use
  Company Number: US-SANOFI-AVENTIS-2013SA045670

PATIENT
  Age: 72 Year
  Sex: Female
  Weight: 74 kg

DRUGS (13)
  1. PLAVIX [Suspect]
  2. COREG [Concomitant]
  3. SYNTHROID [Concomitant]
  4. LASIX [Concomitant]
     Dosage: EVERY 2 DAYS
  5. KLOR-CON [Concomitant]
  6. OMEGA 3 [Concomitant]
  7. FOLIC ACID [Concomitant]
  8. VITAMIN B6 [Concomitant]
  9. VITAMIN B12 [Concomitant]
  10. ALL OTHER THERAPEUTIC PRODUCTS [Concomitant]
  11. ALL OTHER THERAPEUTIC PRODUCTS [Concomitant]
  12. CHOLESTEROL [Concomitant]
  13. CLONIDINE [Concomitant]

REACTIONS (5)
  - Asthma [Not Recovered/Not Resolved]
  - Dyspnoea [Not Recovered/Not Resolved]
  - Confusional state [Not Recovered/Not Resolved]
  - Thyroid disorder [Unknown]
  - Vitamin D decreased [Unknown]
